FAERS Safety Report 9336767 (Version 1)
Quarter: 2013Q2

REPORT INFORMATION
  Report Type: Spontaneous
  Country: RU (occurrence: RU)
  Receive Date: 20130607
  Receipt Date: 20130607
  Transmission Date: 20140414
  Serious: Yes (Other)
  Sender: FDA-Public Use
  Company Number: PHHY2013RU057162

PATIENT
  Age: 66 Year
  Sex: Female

DRUGS (1)
  1. KETONAL [Suspect]
     Indication: BACK PAIN
     Route: 061
     Dates: start: 2012, end: 2012

REACTIONS (1)
  - Asthma [Recovered/Resolved]
